FAERS Safety Report 11988117 (Version 1)
Quarter: 2016Q1

REPORT INFORMATION
  Report Type: Spontaneous
  Country: US (occurrence: None)
  Receive Date: 20160201
  Receipt Date: 20160201
  Transmission Date: 20160526
  Serious: Yes (Other)
  Sender: FDA-Public Use
  Company Number: None

PATIENT
  Age: 63 Year
  Sex: Female
  Weight: 53.07 kg

DRUGS (6)
  1. GAVILYTE - C [Suspect]
     Active Substance: POLYETHYLENE GLYCOL 3350\POTASSIUM CHLORIDE\SODIUM BICARBONATE\SODIUM CHLORIDE\SODIUM SULFATE ANHYDROUS
     Indication: COLONOSCOPY
     Dosage: 8 OZ EVERY 15-30 MIN TAKEN BY MOUTH
     Route: 048
     Dates: start: 20150118, end: 20150118
  2. MULTI VITAMIN [Concomitant]
     Active Substance: VITAMINS
  3. CALCIUM + D [Concomitant]
     Active Substance: CALCIUM\VITAMIN D
  4. VITAMIN B-50 [Concomitant]
  5. GAVILYTE - C [Suspect]
     Active Substance: POLYETHYLENE GLYCOL 3350\POTASSIUM CHLORIDE\SODIUM BICARBONATE\SODIUM CHLORIDE\SODIUM SULFATE ANHYDROUS
     Indication: BOWEL PREPARATION
     Dosage: 8 OZ EVERY 15-30 MIN TAKEN BY MOUTH
     Route: 048
     Dates: start: 20150118, end: 20150118
  6. CRANBERRY. [Concomitant]
     Active Substance: CRANBERRY

REACTIONS (4)
  - No reaction on previous exposure to drug [None]
  - Gastrointestinal disorder [None]
  - Post procedural complication [None]
  - Diarrhoea [None]

NARRATIVE: CASE EVENT DATE: 20150119
